FAERS Safety Report 5393112-X (Version None)
Quarter: 2007Q3

REPORT INFORMATION
  Report Type: 
  Country: None (occurrence: None)
  Receive Date: 20070718
  Receipt Date: 20070704
  Transmission Date: 20080115
  Serious: Yes (Death)
  Sender: FDA-Public Use
  Company Number: 158466ISR

PATIENT
  Age: 76 Year
  Sex: Female

DRUGS (4)
  1. FLUOROURACIL [Suspect]
     Dosage: 800 MG/M2
  2. FOLINIC ACID [Suspect]
  3. OXALIPLATIN [Suspect]
     Dosage: 100 MG/M2
  4. RALTITREXED [Suspect]
     Dosage: 2.5 MG/M2

REACTIONS (9)
  - ATRIAL FIBRILLATION [None]
  - DISEASE PROGRESSION [None]
  - GENERAL PHYSICAL HEALTH DETERIORATION [None]
  - METASTASES TO LUNG [None]
  - METASTASES TO SALIVARY GLAND [None]
  - METASTASES TO SKIN [None]
  - MUCOSAL INFLAMMATION [None]
  - RECTAL CANCER STAGE IV [None]
  - TREATMENT NONCOMPLIANCE [None]
